FAERS Safety Report 21883951 (Version 1)
Quarter: 2023Q1

REPORT INFORMATION
  Report Type: Spontaneous
  Country: US (occurrence: None)
  Receive Date: 20230118
  Receipt Date: 20230118
  Transmission Date: 20230418
  Serious: No
  Sender: FDA-Public Use
  Company Number: None

PATIENT
  Sex: Female

DRUGS (2)
  1. AMBRISENTAN [Suspect]
     Active Substance: AMBRISENTAN
     Indication: Pulmonary hypertension
     Dosage: 10 MG ONCE DAILY ORAL?
     Route: 048
     Dates: start: 202210
  2. ADEMPAS [Suspect]
     Active Substance: RIOCIGUAT

REACTIONS (3)
  - Dizziness [None]
  - Loss of consciousness [None]
  - Hypotension [None]
